FAERS Safety Report 9464412 (Version 4)
Quarter: 2013Q3

REPORT INFORMATION
  Report Type: Spontaneous
  Country: US (occurrence: US)
  Receive Date: 20130819
  Receipt Date: 20130916
  Transmission Date: 20140515
  Serious: Yes (Hospitalization)
  Sender: FDA-Public Use
  Company Number: US-GILEAD-2013-0081442

PATIENT
  Sex: Female

DRUGS (4)
  1. LETAIRIS [Suspect]
     Indication: PULMONARY FIBROSIS
     Dosage: 10 MG, QD
     Dates: start: 20100803
  2. LETAIRIS [Suspect]
     Indication: SCLERODERMA
     Dates: start: 20100804
  3. LETAIRIS [Suspect]
     Indication: PULMONARY HYPERTENSION
  4. REVATIO [Concomitant]

REACTIONS (2)
  - Bronchitis [Recovered/Resolved]
  - Dyspnoea [Unknown]
